FAERS Safety Report 25734936 (Version 1)
Quarter: 2025Q3

REPORT INFORMATION
  Report Type: Report from Study
  Country: US (occurrence: US)
  Receive Date: 20250828
  Receipt Date: 20250828
  Transmission Date: 20251021
  Serious: Yes (Other)
  Sender: GILEAD
  Company Number: US-GILEAD-2025-0725470

PATIENT
  Sex: Male

DRUGS (3)
  1. AZTREONAM LYSINE [Suspect]
     Active Substance: AZTREONAM LYSINE
     Indication: Cystic fibrosis lung
     Route: 065
     Dates: start: 20190925
  2. AZTREONAM LYSINE [Suspect]
     Active Substance: AZTREONAM LYSINE
     Indication: Cystic fibrosis
  3. AZTREONAM LYSINE [Suspect]
     Active Substance: AZTREONAM LYSINE
     Indication: Pseudomonas infection

REACTIONS (12)
  - Parkinson^s disease [Unknown]
  - Respiratory symptom [Unknown]
  - Sputum increased [Unknown]
  - Sputum discoloured [Unknown]
  - Obstructive airways disorder [Unknown]
  - Decreased appetite [Unknown]
  - Oropharyngeal pain [Unknown]
  - Headache [Unknown]
  - Abdominal discomfort [Unknown]
  - Wheezing [Unknown]
  - Chest discomfort [Unknown]
  - Cough [Unknown]
